FAERS Safety Report 7258774-0 (Version None)
Quarter: 2011Q1

REPORT INFORMATION
  Report Type: 
  Country: None (occurrence: None)
  Receive Date: 20110129
  Receipt Date: 20100503
  Transmission Date: 20110831
  Serious: No
  Sender: FDA-Public Use
  Company Number: US-ABBOTT-10P-163-0642644-00

PATIENT
  Age: 67 Year
  Sex: Female

DRUGS (3)
  1. HUMIRA [Suspect]
     Indication: PSORIASIS
     Dates: start: 20100101
  2. PRAZASTATIN SODIUM [Concomitant]
     Indication: PRODUCT USED FOR UNKNOWN INDICATION
  3. LISINOPRIL [Concomitant]
     Indication: PRODUCT USED FOR UNKNOWN INDICATION

REACTIONS (2)
  - EAR CONGESTION [None]
  - NASAL CONGESTION [None]
